FAERS Safety Report 8602967-4 (Version None)
Quarter: 2012Q3

REPORT INFORMATION
  Report Type: 
  Country: None (occurrence: None)
  Receive Date: 20120817
  Receipt Date: 19950327
  Transmission Date: 20120928
  Serious: Yes (Hospitalization)
  Sender: FDA-Public Use
  Company Number: US-ROCHE-1101598

PATIENT
  Sex: Male

DRUGS (5)
  1. ASCRIPTIN (UNITED STATES) [Concomitant]
  2. TRIDIL [Concomitant]
  3. HEPARIN [Concomitant]
  4. NITROGLYCERIN [Concomitant]
  5. ACTIVASE [Suspect]
     Indication: ACUTE MYOCARDIAL INFARCTION
     Dates: start: 19950226

REACTIONS (2)
  - CHEST PAIN [None]
  - NO THERAPEUTIC RESPONSE [None]
